FAERS Safety Report 17814203 (Version 2)
Quarter: 2020Q2

REPORT INFORMATION
  Report Type: Spontaneous
  Country: FR (occurrence: FR)
  Receive Date: 20200521
  Receipt Date: 20200619
  Transmission Date: 20200714
  Serious: Yes (Hospitalization, Other)
  Sender: FDA-Public Use
  Company Number: FR-AUROBINDO-AUR-APL-2020-025306

PATIENT
  Age: 69 Year
  Sex: Male

DRUGS (8)
  1. KARDEGIC [Concomitant]
     Active Substance: ASPIRIN DL-LYSINE
     Indication: PROPHYLAXIS
     Dosage: 160 MILLIGRAM
     Route: 065
  2. DEXAMFETAMINE [Suspect]
     Active Substance: DEXTROAMPHETAMINE
     Indication: NARCOLEPSY
     Dosage: 30 MILLIGRAM
     Route: 048
     Dates: start: 2017, end: 20200206
  3. PERMIXON [Concomitant]
     Active Substance: HERBALS\SAW PALMETTO
     Indication: PRODUCT USED FOR UNKNOWN INDICATION
     Dosage: UNK
     Route: 065
  4. RAMIPRIL. [Suspect]
     Active Substance: RAMIPRIL
     Indication: PRODUCT USED FOR UNKNOWN INDICATION
     Dosage: UNK
     Route: 065
     Dates: start: 1994
  5. LIPANTHYL [Concomitant]
     Active Substance: FENOFIBRATE
     Indication: BLOOD CHOLESTEROL
     Dosage: UNK
     Route: 065
  6. NOVONORM [Concomitant]
     Active Substance: REPAGLINIDE
     Indication: DIABETES MELLITUS
     Dosage: 3 MILLIGRAM
     Route: 065
  7. TOVIAZ [Concomitant]
     Active Substance: FESOTERODINE FUMARATE
     Indication: PRODUCT USED FOR UNKNOWN INDICATION
     Dosage: 4 MILLIGRAM
     Route: 065
  8. INIPOMP [Concomitant]
     Active Substance: PANTOPRAZOLE SODIUM
     Indication: GASTROOESOPHAGEAL REFLUX DISEASE
     Dosage: 20 MILLIGRAM
     Route: 065

REACTIONS (1)
  - Cerebellar stroke [Recovered/Resolved]

NARRATIVE: CASE EVENT DATE: 20200127
